FAERS Safety Report 21920413 (Version 1)
Quarter: 2023Q1

REPORT INFORMATION
  Report Type: Spontaneous
  Country: US (occurrence: None)
  Receive Date: 20230127
  Receipt Date: 20230127
  Transmission Date: 20230418
  Serious: Yes (Hospitalization)
  Sender: FDA-Public Use
  Company Number: 2023A019323

PATIENT
  Age: 83 Year
  Sex: Female

DRUGS (9)
  1. BUDESONIDE\FORMOTEROL [Suspect]
     Active Substance: BUDESONIDE\FORMOTEROL
     Dosage: 160MCG 2 PUFFS TWO TIMES A DAY
     Route: 055
  2. TEZEPELUMAB [Suspect]
     Active Substance: TEZEPELUMAB
     Route: 065
     Dates: start: 202205
  3. TEZEPELUMAB [Suspect]
     Active Substance: TEZEPELUMAB
     Route: 065
     Dates: start: 202207
  4. PREDNISONE [Concomitant]
     Active Substance: PREDNISONE
  5. UNSPECIFIED INGREDIENT [Concomitant]
     Active Substance: UNSPECIFIED INGREDIENT
  6. MONTELUKAST [Concomitant]
     Active Substance: MONTELUKAST SODIUM
     Dates: start: 2018
  7. ALBUTEROL\IPRATROPIUM BROMIDE [Concomitant]
     Active Substance: ALBUTEROL\IPRATROPIUM BROMIDE
  8. FLUTICASONE [Concomitant]
     Active Substance: FLUTICASONE
  9. CLARITIN [Concomitant]
     Active Substance: LORATADINE

REACTIONS (5)
  - Dyspnoea paroxysmal nocturnal [Unknown]
  - Dyspnoea [Not Recovered/Not Resolved]
  - Wheezing [Not Recovered/Not Resolved]
  - Loss of personal independence in daily activities [Not Recovered/Not Resolved]
  - Drug ineffective [Unknown]
